FAERS Safety Report 18482917 (Version 1)
Quarter: 2020Q4

REPORT INFORMATION
  Report Type: Spontaneous
  Country: US (occurrence: US)
  Receive Date: 20201110
  Receipt Date: 20201110
  Transmission Date: 20210114
  Serious: Yes (Hospitalization)
  Sender: FDA-Public Use
  Company Number: US-CIPLA LTD.-2020US07829

PATIENT

DRUGS (6)
  1. AMLODIPINE [Concomitant]
     Active Substance: AMLODIPINE BESYLATE
     Indication: BLOOD PRESSURE ABNORMAL
     Dosage: 7.5 MILLIGRAM, QD (ONCE A DAY)
     Route: 065
  2. MELOXICAM. [Suspect]
     Active Substance: MELOXICAM
     Indication: PRODUCT USED FOR UNKNOWN INDICATION
     Dosage: UNK, QD (ONCE A DAY)
     Route: 065
     Dates: start: 202010
  3. GABAPENTIN. [Suspect]
     Active Substance: GABAPENTIN
     Indication: NEUROPATHY PERIPHERAL
     Dosage: UNK, TID, THREE TIMES DAILY (AT 6:00, 14:00 AND 20:00 HOURS)
     Route: 048
     Dates: start: 202009
  4. GABAPENTIN. [Suspect]
     Active Substance: GABAPENTIN
     Indication: BACK PAIN
  5. HYDROCODONE [Concomitant]
     Active Substance: HYDROCODONE
     Indication: BACK PAIN
     Dosage: 325 MILLIGRAM, TID (3 TIMES A DAY)
     Route: 065
     Dates: start: 202001
  6. TYLENOL [Concomitant]
     Active Substance: ACETAMINOPHEN
     Indication: PAIN
     Dosage: UNK, PRN (AS NEEDED)
     Route: 065

REACTIONS (8)
  - Muscle spasms [Recovered/Resolved]
  - Pain [Not Recovered/Not Resolved]
  - Off label use [Unknown]
  - Arthralgia [Unknown]
  - Product use in unapproved indication [Unknown]
  - Pain in extremity [Not Recovered/Not Resolved]
  - Loss of personal independence in daily activities [Not Recovered/Not Resolved]
  - Peripheral swelling [Not Recovered/Not Resolved]

NARRATIVE: CASE EVENT DATE: 2020
